FAERS Safety Report 20119637 (Version 1)
Quarter: 2021Q4

REPORT INFORMATION
  Report Type: Spontaneous
  Country: SK (occurrence: SK)
  Receive Date: 20211126
  Receipt Date: 20211126
  Transmission Date: 20220303
  Serious: Yes (Death, Other)
  Sender: FDA-Public Use
  Company Number: SK-AMGEN-SVKSP2021187179

PATIENT

DRUGS (9)
  1. BLINATUMOMAB [Suspect]
     Active Substance: BLINATUMOMAB
     Indication: Acute myeloid leukaemia
     Dosage: UNK
     Route: 065
  2. DEXAMETHASONE [Concomitant]
     Active Substance: DEXAMETHASONE
  3. VINCRISTINE [Concomitant]
     Active Substance: VINCRISTINE
  4. ADRIAMYCIN [Concomitant]
     Active Substance: DOXORUBICIN HYDROCHLORIDE
  5. CYCLOPHOSPHAMIDE [Concomitant]
     Active Substance: CYCLOPHOSPHAMIDE
  6. RITUXIMAB [Concomitant]
     Active Substance: RITUXIMAB
  7. IMATINIB [Concomitant]
     Active Substance: IMATINIB
     Indication: Philadelphia positive acute lymphocytic leukaemia
  8. DASATINIB [Concomitant]
     Active Substance: DASATINIB
  9. CYTARABINE\FLUDARABINE\GRANULOCYTE COLONY-STIMULATING FACTOR NOS\IDARU [Concomitant]
     Active Substance: CYTARABINE\FLUDARABINE\GRANULOCYTE COLONY-STIMULATING FACTOR NOS\IDARUBICIN

REACTIONS (7)
  - Death [Fatal]
  - Acute graft versus host disease [Fatal]
  - Acute myeloid leukaemia [Fatal]
  - Acute lymphocytic leukaemia [Fatal]
  - Transplant failure [Fatal]
  - Toxicity to various agents [Fatal]
  - Infection [Fatal]
